FAERS Safety Report 5937730-6 (Version None)
Quarter: 2008Q4

REPORT INFORMATION
  Report Type: 
  Country: None (occurrence: None)
  Receive Date: 20081031
  Receipt Date: 20081022
  Transmission Date: 20090506
  Serious: Yes (Life-Threatening)
  Sender: FDA-Public Use
  Company Number: CN-GENENTECH-226883

PATIENT
  Sex: Male
  Weight: 52 kg

DRUGS (5)
  1. BEVACIZUMAB [Suspect]
     Indication: PANCREATIC CARCINOMA
     Dosage: 5 MG/KG, Q2W
     Route: 042
     Dates: start: 20060329, end: 20060524
  2. ERLOTINIB [Suspect]
     Indication: PANCREATIC CARCINOMA METASTATIC
     Dosage: 100 MG, QD
     Route: 048
     Dates: start: 20060329, end: 20060808
  3. GEMCITABINE [Suspect]
     Indication: PANCREATIC CARCINOMA METASTATIC
     Dosage: 1550 MG, 1/WEEK
     Route: 042
     Dates: start: 20060329, end: 20060726
  4. GLYCERIN ENEMA [Concomitant]
     Indication: DRUG USE FOR UNKNOWN INDICATION
     Dates: start: 20060816, end: 20060816
  5. INDOMETHACIN [Concomitant]
     Indication: DRUG USE FOR UNKNOWN INDICATION
     Dates: start: 20060817, end: 20060915

REACTIONS (1)
  - HEPATIC FUNCTION ABNORMAL [None]
